FAERS Safety Report 15765232 (Version 1)
Quarter: 2018Q4

REPORT INFORMATION
  Report Type: Spontaneous
  Country: US (occurrence: US)
  Receive Date: 20181227
  Receipt Date: 20181227
  Transmission Date: 20190205
  Serious: Yes (Hospitalization, Other)
  Sender: FDA-Public Use
  Company Number: US-SA-2018SA391315

PATIENT
  Age: 30 Year
  Sex: Female

DRUGS (10)
  1. GEMCITABINE HYDROCHLORIDE. [Suspect]
     Active Substance: GEMCITABINE HYDROCHLORIDE
     Dosage: 675 MG/M2, UNK
     Route: 042
     Dates: start: 20171129, end: 20171129
  2. DEXAMETHASONE. [Concomitant]
     Active Substance: DEXAMETHASONE
     Dosage: UNK
     Dates: start: 20171205, end: 20171207
  3. GEMCITABINE HYDROCHLORIDE. [Suspect]
     Active Substance: GEMCITABINE HYDROCHLORIDE
     Dosage: UNK UNK, UNK
     Route: 065
     Dates: start: 20171206, end: 20171206
  4. METOCLOPRAMIDE HYDROCHLORIDE. [Concomitant]
     Active Substance: METOCLOPRAMIDE HYDROCHLORIDE
     Dosage: UNK
     Dates: start: 20171109, end: 20171206
  5. TAXOTERE [Suspect]
     Active Substance: DOCETAXEL
     Dosage: ON EIGHT DAY OF A 21 DAY CYCLE
     Route: 065
     Dates: start: 20171108, end: 20171108
  6. GEMCITABINE HYDROCHLORIDE. [Suspect]
     Active Substance: GEMCITABINE HYDROCHLORIDE
     Indication: SOFT TISSUE SARCOMA
     Dosage: ONE AND EIGHT DAY OF A 21 DAY CYCLE
     Route: 042
     Dates: start: 20171004, end: 20171004
  7. CHLORPHENAMINE [Concomitant]
     Active Substance: CHLORPHENIRAMINE MALEATE
     Dosage: UNK
     Dates: start: 20171129, end: 20171206
  8. TAXOTERE [Suspect]
     Active Substance: DOCETAXEL
     Indication: SOFT TISSUE SARCOMA
     Dosage: ON EIGHT DAY OF A 21 DAY CYCLE
     Dates: start: 20171011, end: 20171011
  9. DOMPERIDONE [Concomitant]
     Active Substance: DOMPERIDONE
     Dosage: UNK
     Dates: start: 20171014
  10. TAXOTERE [Suspect]
     Active Substance: DOCETAXEL
     Dosage: UNK UNK, UNK
     Route: 065
     Dates: start: 20171206, end: 20171206

REACTIONS (18)
  - Red blood cell count decreased [Unknown]
  - Prothrombin time ratio increased [Unknown]
  - Monocyte count decreased [Unknown]
  - Enterococcal infection [Unknown]
  - Heart rate increased [Unknown]
  - Platelet count decreased [Unknown]
  - White blood cell count increased [Unknown]
  - Hepatic enzyme increased [Unknown]
  - Lymphocyte count decreased [Unknown]
  - Haemoglobin decreased [Unknown]
  - Pyrexia [Recovered/Resolved]
  - Cough [Recovered/Resolved]
  - Pyrexia [Recovered/Resolved]
  - Viral test positive [Unknown]
  - Disease recurrence [Unknown]
  - Micrococcus infection [Unknown]
  - Deep vein thrombosis [Recovered/Resolved]
  - Prothrombin time abnormal [Unknown]

NARRATIVE: CASE EVENT DATE: 20171113
